FAERS Safety Report 7775039-9 (Version None)
Quarter: 2011Q3

REPORT INFORMATION
  Report Type: 
  Country: None (occurrence: None)
  Receive Date: 20110923
  Receipt Date: 20110912
  Transmission Date: 20111222
  Serious: Yes (Other)
  Sender: FDA-Public Use
  Company Number: GB-ELI_LILLY_AND_COMPANY-GB201109003206

PATIENT

DRUGS (2)
  1. ATOMOXETINE HCL [Suspect]
     Dosage: 40 MG, QD
  2. ATOMOXETINE HCL [Suspect]
     Dosage: 1 DF, UNK

REACTIONS (2)
  - EMOTIONAL DISORDER [None]
  - ANGER [None]
